FAERS Safety Report 9424368 (Version 2)
Quarter: 2013Q3

REPORT INFORMATION
  Report Type: Spontaneous
  Country: US (occurrence: US)
  Receive Date: 20130729
  Receipt Date: 20130909
  Transmission Date: 20140515
  Serious: Yes (Death)
  Sender: FDA-Public Use
  Company Number: US-GENZYME-RENA-1001891

PATIENT
  Sex: Female

DRUGS (30)
  1. RENVELA [Suspect]
     Indication: RENAL FAILURE CHRONIC
     Dosage: 0.8 G, 3 TABLETS,  TID
     Route: 065
  2. AMBIEN [Concomitant]
     Indication: PRODUCT USED FOR UNKNOWN INDICATION
     Dosage: 5 MG, QD, 1 TABLET BY MOUTH AT BEDTIME
     Route: 048
  3. AMITRIPTYLINE [Concomitant]
     Indication: PRODUCT USED FOR UNKNOWN INDICATION
     Dosage: 50 MG, QD, 1 TABLET BY MOUTH
     Route: 048
  4. CARBINOXAMINE MALEATE [Concomitant]
     Indication: PRODUCT USED FOR UNKNOWN INDICATION
     Dosage: 4 MG, PRN, 1 TAB BY MOUTH FOUR TIMES A DAY AS NEEDED
     Route: 048
  5. CIPRO [Concomitant]
     Indication: PRODUCT USED FOR UNKNOWN INDICATION
     Dosage: 500 MG, QD, 1 TABLET BY MOUTH
     Route: 048
  6. COLACE [Concomitant]
     Indication: PRODUCT USED FOR UNKNOWN INDICATION
     Dosage: 50 MG, UNK, 1-2 CAPSULE BY MOUTH ONCE  A DAY AS NEEDED
     Route: 048
  7. COLON HEALTH [Concomitant]
     Indication: PRODUCT USED FOR UNKNOWN INDICATION
     Dosage: QD, 1 CAPSULE BY MOUTH ONCE A DAY
     Route: 048
  8. DULCOLAX [Concomitant]
     Indication: PRODUCT USED FOR UNKNOWN INDICATION
     Dosage: 100 MG, PRN, 1 CAPSULE BY MOUTH AS DIRECTED
     Route: 048
  9. EPOGEN [Concomitant]
     Indication: PRODUCT USED FOR UNKNOWN INDICATION
     Dosage: 2000 U/ML, 1X/W, SOLUTION 1 ML
     Route: 058
  10. HEPARIN [Concomitant]
     Indication: PRODUCT USED FOR UNKNOWN INDICATION
     Dosage: 7000 U, UNK
     Route: 042
  11. HEPARIN [Concomitant]
     Indication: PRODUCT USED FOR UNKNOWN INDICATION
     Dosage: 5000 U/ML, UNK, SOLUTION
     Route: 065
  12. FLUCONAZOLE [Concomitant]
     Indication: PRODUCT USED FOR UNKNOWN INDICATION
     Dosage: 200 MG, UNK, 1 TABLET BY MOUTH EVERY OTHER DAY
     Route: 048
  13. HUMALOG [Concomitant]
     Indication: PRODUCT USED FOR UNKNOWN INDICATION
     Dosage: 100 U/ML, TID, 14 UNIT WITH EACH MEAL AND AT BEDTIME
     Route: 058
  14. LANTUS [Concomitant]
     Indication: PRODUCT USED FOR UNKNOWN INDICATION
     Dosage: 100 U/ML, UNK, 32 UNIT AT BEDTIME
     Route: 058
  15. LEVOTHYROXINE [Concomitant]
     Indication: PRODUCT USED FOR UNKNOWN INDICATION
     Dosage: 200 MCG, QD, 1 TABLET BY MOUTH
     Route: 048
  16. LEXAPRO [Concomitant]
     Indication: PRODUCT USED FOR UNKNOWN INDICATION
     Dosage: 10 MG, QD, 1 TABLET BY MOUTH
     Route: 048
  17. MELOXICAM [Concomitant]
     Indication: PRODUCT USED FOR UNKNOWN INDICATION
     Dosage: 15 MG, QD, 1 TABLET BY MOUTH
     Route: 048
  18. METRONIDAZOLE [Concomitant]
     Indication: PRODUCT USED FOR UNKNOWN INDICATION
     Dosage: 500 MG, QD, 1 TABLET BY MOUTH
     Route: 048
  19. MULTIVITAMIN [Concomitant]
     Indication: PRODUCT USED FOR UNKNOWN INDICATION
     Dosage: UNK, 1 TABLET BY MOUTH ONCE A DAY
     Route: 048
  20. NEURONTIN [Concomitant]
     Indication: PRODUCT USED FOR UNKNOWN INDICATION
     Dosage: 300 MG, TID, 1 CAPSULE BY MOUTH
     Route: 048
  21. NORCO [Concomitant]
     Indication: PAIN
     Dosage: UNK MG, PRN, 5-325 MG, 1 TABLET BY MOUTH EVERY 4 HOURS
     Route: 048
  22. PHOSLO [Concomitant]
     Indication: PRODUCT USED FOR UNKNOWN INDICATION
     Dosage: 667 MG, TID, 1 CAPSULE WITH MEALS
     Route: 048
  23. PLAVIX [Concomitant]
     Indication: PRODUCT USED FOR UNKNOWN INDICATION
     Dosage: 75 MG, QD, 1 TABLET BY MOUTH
     Route: 048
  24. PRILOSEC [Concomitant]
     Indication: PRODUCT USED FOR UNKNOWN INDICATION
     Dosage: 20 MG, BID, DELAYED RELEASE (DR/EC), 1 CAPSULE BY MOUTH
     Route: 048
  25. PROMETHAZINE [Concomitant]
     Indication: PRODUCT USED FOR UNKNOWN INDICATION
     Dosage: 25 MG, QID, 1 TABLET BY MOUTH EVERY SIX HOURS AS NEEDED
     Route: 048
  26. REGLAN [Concomitant]
     Indication: PRODUCT USED FOR UNKNOWN INDICATION
     Dosage: 5 MG, QID, 1/2 TABLET BY MOUTH
     Route: 048
  27. SENSIPAR [Concomitant]
     Indication: PRODUCT USED FOR UNKNOWN INDICATION
     Dosage: 30 MG, QD, 2 TABLET BY MOUTH
     Route: 048
  28. TYLENOL [Concomitant]
     Indication: PRODUCT USED FOR UNKNOWN INDICATION
     Dosage: 325 MG, BID, 2 TABLET BY MOUTH TWICE A DAY AS NEEDED
     Route: 048
  29. VITAMIN D3 [Concomitant]
     Indication: PRODUCT USED FOR UNKNOWN INDICATION
     Dosage: 2000 U, QD, 1 CAPSULE BY MOUTH
     Route: 048
  30. RENVELA [Concomitant]
     Indication: PRODUCT USED FOR UNKNOWN INDICATION
     Dosage: 800 MG, TID
     Route: 048

REACTIONS (1)
  - Renal failure chronic [Fatal]
